FAERS Safety Report 10261611 (Version 2)
Quarter: 2014Q2

REPORT INFORMATION
  Report Type: Spontaneous
  Country: US (occurrence: US)
  Receive Date: 20140626
  Receipt Date: 20140626
  Transmission Date: 20141212
  Serious: No
  Sender: FDA-Public Use
  Company Number: US-MYLANLABS-2014S1006281

PATIENT
  Age: 64 Year
  Sex: Female
  Weight: 63.96 kg

DRUGS (4)
  1. ATORVASTATIN CALCIUM TABLETS [Suspect]
     Indication: BLOOD CHOLESTEROL INCREASED
     Route: 048
     Dates: start: 20140206, end: 201402
  2. ATORVASTATIN CALCIUM TABLETS [Suspect]
     Indication: BLOOD CHOLESTEROL INCREASED
     Route: 048
     Dates: start: 201402
  3. DIOVAN [Concomitant]
  4. ASPIRIN [Concomitant]

REACTIONS (2)
  - Rash [Not Recovered/Not Resolved]
  - Pruritus [Not Recovered/Not Resolved]
